FAERS Safety Report 22838189 (Version 3)
Quarter: 2024Q2

REPORT INFORMATION
  Report Type: Spontaneous
  Country: US (occurrence: US)
  Receive Date: 20230818
  Receipt Date: 20240514
  Transmission Date: 20240716
  Serious: Yes (Hospitalization, Other)
  Sender: FDA-Public Use
  Company Number: US-AMNEAL PHARMACEUTICALS-2023-AMRX-02834

PATIENT

DRUGS (4)
  1. ADRENACLICK [Suspect]
     Active Substance: EPINEPHRINE
     Indication: Hypersensitivity
     Dosage: 0.3 MG
     Route: 065
     Dates: start: 20230807
  2. ADRENACLICK [Suspect]
     Active Substance: EPINEPHRINE
     Indication: Urticaria
  3. ADRENACLICK [Suspect]
     Active Substance: EPINEPHRINE
     Indication: Swelling face
  4. CHAPSTICK [Concomitant]
     Active Substance: PETROLATUM
     Indication: Product used for unknown indication
     Dosage: UNK
     Route: 065

REACTIONS (2)
  - Device failure [Unknown]
  - No adverse event [Unknown]

NARRATIVE: CASE EVENT DATE: 20230807
